FAERS Safety Report 6390618-1 (Version None)
Quarter: 2009Q4

REPORT INFORMATION
  Report Type: 
  Country: None (occurrence: None)
  Receive Date: 20091006
  Receipt Date: 20090930
  Transmission Date: 20100525
  Serious: Yes (Hospitalization)
  Sender: FDA-Public Use
  Company Number: ES-AVENTIS-200915901EU

PATIENT
  Age: 53 Year
  Sex: Male

DRUGS (8)
  1. CLEXANE [Suspect]
     Indication: DEEP VEIN THROMBOSIS
     Route: 058
     Dates: start: 20090507, end: 20090519
  2. NOLOTIL                            /00473101/ [Suspect]
     Indication: PAIN
     Route: 030
     Dates: start: 20090507, end: 20090507
  3. PREDNISONE NOS [Concomitant]
     Indication: RENAL TRANSPLANT
     Route: 048
     Dates: start: 19990101
  4. OMEPRAZOLE [Concomitant]
     Route: 048
  5. ADALAT [Concomitant]
     Indication: HYPERTENSION
     Route: 048
     Dates: start: 19990101
  6. CARDURA [Concomitant]
     Route: 048
  7. CELLCEP [Concomitant]
     Indication: RENAL TRANSPLANT
     Route: 048
     Dates: start: 19990101
  8. SANDIMMUNE [Concomitant]
     Indication: RENAL TRANSPLANT
     Route: 048
     Dates: start: 19990101

REACTIONS (4)
  - ANAEMIA [None]
  - INJECTION SITE HAEMATOMA [None]
  - RENAL FAILURE ACUTE [None]
  - RHABDOMYOLYSIS [None]
